FAERS Safety Report 4738698-0 (Version None)
Quarter: 2005Q3

REPORT INFORMATION
  Report Type: 
  Country: None (occurrence: None)
  Receive Date: 20050803
  Receipt Date: 20050722
  Transmission Date: 20060218
  Serious: Yes (Hospitalization)
  Sender: FDA-Public Use
  Company Number: 2005098875

PATIENT
  Age: 36 Year
  Sex: Male
  Weight: 61 kg

DRUGS (2)
  1. CELEBREX [Suspect]
     Indication: ANKYLOSING SPONDYLITIS
     Dosage: 400 MG (2 IN 1 D), ORAL
     Route: 048
     Dates: start: 20050601, end: 20050705
  2. LEVOTHYROXINE SODIUM (LEVOTHYROXINE SODIUN) [Concomitant]

REACTIONS (1)
  - SMALL INTESTINAL OBSTRUCTION [None]
